FAERS Safety Report 26124150 (Version 1)
Quarter: 2025Q4

REPORT INFORMATION
  Report Type: Spontaneous
  Country: RU (occurrence: RU)
  Receive Date: 20251205
  Receipt Date: 20251205
  Transmission Date: 20260118
  Serious: Yes (Hospitalization, Other)
  Sender: BAYER HEALTHCARE PHARMACEUTICALS INC.
  Company Number: RU-BAYER-2025A157415

PATIENT
  Age: 66 Year
  Sex: Male

DRUGS (2)
  1. ADEMPAS [Suspect]
     Active Substance: RIOCIGUAT
     Indication: Pulmonary hypertension
  2. ADEMPAS [Suspect]
     Active Substance: RIOCIGUAT
     Indication: Pulmonary embolism

REACTIONS (8)
  - Respiratory failure [None]
  - Dyspnoea exertional [None]
  - Oxygen saturation decreased [None]
  - Dependence on oxygen therapy [Recovering/Resolving]
  - Pulmonary embolism [None]
  - Pulmonary hypertension [None]
  - Respiratory failure [None]
  - Drug ineffective [None]

NARRATIVE: CASE EVENT DATE: 20250501
